FAERS Safety Report 6732897-4 (Version None)
Quarter: 2010Q2

REPORT INFORMATION
  Report Type: 
  Country: None (occurrence: None)
  Receive Date: 20100517
  Receipt Date: 20100511
  Transmission Date: 20101027
  Serious: Yes (Death)
  Sender: FDA-Public Use
  Company Number: 2010SP026535

PATIENT
  Age: 18 Year
  Sex: Male

DRUGS (1)
  1. ZEMURON [Suspect]
     Indication: DRUG USE FOR UNKNOWN INDICATION

REACTIONS (1)
  - TOXICOLOGIC TEST ABNORMAL [None]
